FAERS Safety Report 18534137 (Version 2)
Quarter: 2020Q4

REPORT INFORMATION
  Report Type: Report from Study
  Country: US (occurrence: US)
  Receive Date: 20201123
  Receipt Date: 20201127
  Transmission Date: 20210114
  Serious: No
  Sender: FDA-Public Use
  Company Number: US-SA-2020SA321344

PATIENT

DRUGS (2)
  1. DUPILUMAB [Suspect]
     Active Substance: DUPILUMAB
     Indication: ECZEMA
     Dosage: UNK
     Dates: start: 20201026
  2. DUPILUMAB [Suspect]
     Active Substance: DUPILUMAB
     Indication: DERMATITIS ATOPIC

REACTIONS (5)
  - Wrong technique in product usage process [Unknown]
  - Therapeutic response decreased [Unknown]
  - Rash [Unknown]
  - Skin exfoliation [Unknown]
  - Injection site swelling [Unknown]

NARRATIVE: CASE EVENT DATE: 2020
